FAERS Safety Report 10249747 (Version 1)
Quarter: 2014Q2

REPORT INFORMATION
  Report Type: Spontaneous
  Country: US (occurrence: None)
  Receive Date: 20140618
  Receipt Date: 20140618
  Transmission Date: 20141212
  Serious: Yes (Other)
  Sender: FDA-Public Use
  Company Number: None

PATIENT
  Age: 47 Year
  Sex: Female

DRUGS (1)
  1. PAMPRIN [Suspect]
     Dosage: 2 PILLS

REACTIONS (5)
  - Urticaria [None]
  - Swelling [None]
  - Local swelling [None]
  - Pharyngeal oedema [None]
  - Swelling face [None]
